FAERS Safety Report 6986210-8 (Version None)
Quarter: 2010Q3

REPORT INFORMATION
  Report Type: 
  Country: None (occurrence: None)
  Receive Date: 20100915
  Receipt Date: 20090615
  Transmission Date: 20110219
  Serious: No
  Sender: FDA-Public Use
  Company Number: US-WYE-H09767409

PATIENT
  Sex: Female
  Weight: 57.66 kg

DRUGS (5)
  1. PRISTIQ [Suspect]
     Indication: DEPRESSION
     Route: 048
     Dates: start: 20090612
  2. PRISTIQ [Suspect]
     Indication: STRESS
  3. VALIUM [Concomitant]
  4. MOTRIN [Concomitant]
  5. NEURONTIN [Concomitant]

REACTIONS (2)
  - MIGRAINE [None]
  - NAUSEA [None]
